FAERS Safety Report 12611439 (Version 6)
Quarter: 2016Q3

REPORT INFORMATION
  Report Type: Spontaneous
  Country: JP (occurrence: JP)
  Receive Date: 20160801
  Receipt Date: 20160927
  Transmission Date: 20161109
  Serious: Yes (Death, Hospitalization, Other)
  Sender: FDA-Public Use
  Company Number: JP-PFIZER INC-2016367117

PATIENT
  Age: 80 Year
  Sex: Male

DRUGS (26)
  1. DOXORUBICIN HCL [Suspect]
     Active Substance: DOXORUBICIN HYDROCHLORIDE
     Indication: DIFFUSE LARGE B-CELL LYMPHOMA
     Dosage: (6 CYCLES) SIX COURSES
     Route: 041
  2. GEMCITABINE HYDROCHLORIDE. [Suspect]
     Active Substance: GEMCITABINE HYDROCHLORIDE
     Indication: DIFFUSE LARGE B-CELL LYMPHOMA
     Dosage: (2 CYCLES) TWO COURSES
     Route: 041
     Dates: start: 201409, end: 201409
  3. CISPLATIN. [Suspect]
     Active Substance: CISPLATIN
     Indication: DIFFUSE LARGE B-CELL LYMPHOMA
     Dosage: (2 CYCLES) TWO COURSES
     Route: 041
     Dates: start: 201409, end: 201410
  4. VINCRISTINE [Suspect]
     Active Substance: VINCRISTINE
     Indication: DIFFUSE LARGE B-CELL LYMPHOMA
     Dosage: (6 CYCLES) SIX COURSES
     Route: 041
  5. PROCARBAZINE [Suspect]
     Active Substance: PROCARBAZINE
     Dosage: UNK UNK, WEEKLY
     Route: 048
     Dates: start: 201502
  6. PERAMIVIR [Suspect]
     Active Substance: PERAMIVIR
     Dosage: 300 MG, UNK
     Route: 042
     Dates: start: 201502
  7. PREDNISOLONE. [Suspect]
     Active Substance: PREDNISOLONE
     Indication: DIFFUSE LARGE B-CELL LYMPHOMA
     Dosage: (6 CYCLES) SIX COURSES
     Route: 048
  8. PREDNISOLONE. [Suspect]
     Active Substance: PREDNISOLONE
     Dosage: 20 MG, DAILY
     Route: 048
     Dates: start: 201502, end: 201504
  9. RITUXIMAB [Suspect]
     Active Substance: RITUXIMAB
     Indication: DIFFUSE LARGE B-CELL LYMPHOMA
     Dosage: (6 CYCLES) SIX COURSES
     Route: 041
  10. CYCLOPHOSPHAMIDE. [Suspect]
     Active Substance: CYCLOPHOSPHAMIDE
     Dosage: END OF FEBRUARY
     Route: 048
     Dates: start: 201502
  11. ETOPOSIDE. [Suspect]
     Active Substance: ETOPOSIDE
     Dosage: UNK UNK, WEEKLY
     Route: 048
     Dates: start: 201502
  12. RITUXIMAB [Suspect]
     Active Substance: RITUXIMAB
     Dosage: UNK
  13. RITUXIMAB [Suspect]
     Active Substance: RITUXIMAB
     Dosage: (2 CYCLES, R-GDP)
     Route: 041
     Dates: start: 201411
  14. CYCLOPHOSPHAMIDE. [Suspect]
     Active Substance: CYCLOPHOSPHAMIDE
     Indication: DIFFUSE LARGE B-CELL LYMPHOMA
     Dosage: (6 CYCLES) SIX COURSES
     Route: 041
  15. OSELTAMIVIR [Suspect]
     Active Substance: OSELTAMIVIR
     Indication: INFLUENZA
     Dosage: 75 MILLIGRAM DAILY
     Route: 048
     Dates: start: 201501
  16. BENDAMUSTINE HYDROCHLORIDE. [Suspect]
     Active Substance: BENDAMUSTINE HYDROCHLORIDE
     Indication: DIFFUSE LARGE B-CELL LYMPHOMA
     Dosage: UNK
     Route: 041
     Dates: start: 201411, end: 201411
  17. PREDNISOLONE. [Suspect]
     Active Substance: PREDNISOLONE
     Dosage: 30 MG, DAILY
     Route: 065
     Dates: start: 201412
  18. PREDNISOLONE. [Suspect]
     Active Substance: PREDNISOLONE
     Dosage: EVERY OTHER DAY
     Route: 048
     Dates: start: 201501, end: 201501
  19. RITUXIMAB [Suspect]
     Active Substance: RITUXIMAB
     Dosage: (2 CYCLES, R-GDP)
     Route: 041
     Dates: start: 201409, end: 201410
  20. ETOPOSIDE. [Suspect]
     Active Substance: ETOPOSIDE
     Indication: DIFFUSE LARGE B-CELL LYMPHOMA
     Dosage: EVERY OTHER DAY
     Route: 048
     Dates: start: 201501, end: 201501
  21. OSELTAMIVIR [Suspect]
     Active Substance: OSELTAMIVIR
     Dosage: 150 MILLIGRAM DAILY
     Route: 048
     Dates: start: 201502
  22. CYCLOPHOSPHAMIDE. [Suspect]
     Active Substance: CYCLOPHOSPHAMIDE
     Dosage: EVERY OTHER DAY
     Dates: start: 201501
  23. DEXAMETHASONE. [Suspect]
     Active Substance: DEXAMETHASONE
     Indication: DIFFUSE LARGE B-CELL LYMPHOMA
     Dosage: (2 CYCLES) TWO COURSES
     Route: 048
     Dates: start: 201409, end: 201409
  24. PROCARBAZINE [Suspect]
     Active Substance: PROCARBAZINE
     Indication: DIFFUSE LARGE B-CELL LYMPHOMA
     Dosage: EVERY OTHER DAY
     Route: 048
     Dates: start: 201501, end: 201501
  25. OSELTAMIVIR [Suspect]
     Active Substance: OSELTAMIVIR
     Dosage: 150 MILLIGRAM DAILY
     Route: 048
     Dates: start: 201501
  26. PERAMIVIR [Suspect]
     Active Substance: PERAMIVIR
     Indication: INFLUENZA
     Dosage: 300 MG, UNK
     Route: 042
     Dates: start: 201502

REACTIONS (1)
  - Influenza [Fatal]
